FAERS Safety Report 5456772-0 (Version None)
Quarter: 2007Q3

REPORT INFORMATION
  Report Type: 
  Country: None (occurrence: None)
  Receive Date: 20070918
  Receipt Date: 20070531
  Transmission Date: 20080115
  Serious: Yes (Other)
  Sender: FDA-Public Use
  Company Number: US-ASTRAZENECA-2006UW26190

PATIENT
  Age: 16491 Day
  Sex: Female
  Weight: 71.4 kg

DRUGS (3)
  1. SEROQUEL [Suspect]
     Indication: ANXIETY
     Route: 048
     Dates: start: 19991026
  2. SEROQUEL [Suspect]
     Indication: DEPRESSION
     Route: 048
     Dates: start: 19991026
  3. LEXAPRO [Concomitant]
     Route: 048
     Dates: start: 20060101

REACTIONS (1)
  - PANCREATITIS [None]
